FAERS Safety Report 17543357 (Version 3)
Quarter: 2020Q4

REPORT INFORMATION
  Report Type: Spontaneous
  Country: US (occurrence: US)
  Receive Date: 20200316
  Receipt Date: 20201105
  Transmission Date: 20210113
  Serious: No
  Sender: FDA-Public Use
  Company Number: US-LUPIN PHARMACEUTICALS INC.-2020-00987

PATIENT
  Age: 41 Year
  Sex: Female
  Weight: 60.32 kg

DRUGS (5)
  1. ESCITALOPRAM OXALATE TABLETS USP, 5 MG [Suspect]
     Active Substance: ESCITALOPRAM OXALATE
     Indication: ANXIETY
     Dosage: 10 MILLIGRAM, QD
     Route: 048
  2. ESCITALOPRAM OXALATE TABLETS USP, 10 MG [Suspect]
     Active Substance: ESCITALOPRAM OXALATE
     Indication: DEPRESSION
     Dosage: 10 MILLIGRAM, QD
     Route: 048
     Dates: start: 20200212, end: 20200405
  3. ESCITALOPRAM OXALATE TABLETS USP, 10 MG [Suspect]
     Active Substance: ESCITALOPRAM OXALATE
     Indication: ANXIETY
  4. ESCITALOPRAM OXALATE TABLETS USP, 5 MG [Suspect]
     Active Substance: ESCITALOPRAM OXALATE
     Indication: DEPRESSION
     Dosage: 5 MILLIGRAM
     Route: 048
     Dates: start: 20200123
  5. SPIRONOLACTONE. [Concomitant]
     Active Substance: SPIRONOLACTONE
     Indication: PRODUCT USED FOR UNKNOWN INDICATION
     Dosage: UNK
     Route: 065

REACTIONS (3)
  - Therapeutic product effect incomplete [Unknown]
  - Product quality issue [Unknown]
  - Drug ineffective [Unknown]

NARRATIVE: CASE EVENT DATE: 20200212
